FAERS Safety Report 15685607 (Version 1)
Quarter: 2018Q4

REPORT INFORMATION
  Report Type: Spontaneous
  Country: US (occurrence: US)
  Receive Date: 20181121
  Receipt Date: 20181121
  Transmission Date: 20190205
  Serious: Yes (Other)
  Sender: FDA-Public Use
  Company Number: None

PATIENT
  Age: 0 Day
  Sex: Male
  Weight: 3.4 kg

DRUGS (5)
  1. LABETALOL [Suspect]
     Active Substance: LABETALOL\LABETALOL HYDROCHLORIDE
     Indication: HYPERTENSION
     Dosage: ~28 WEEKS - DELIVERY ?MOTHER^S MEDICATION
  2. WELLBUTRIN SR [Suspect]
     Active Substance: BUPROPION HYDROCHLORIDE
     Indication: BIPOLAR DISORDER
     Dosage: ~0-4 WEEKS?MOTHER^S MEDICATION
  3. LATUDA [Suspect]
     Active Substance: LURASIDONE HYDROCHLORIDE
     Indication: BIPOLAR DISORDER
     Dosage: ~OVER 0-4 WEEKS; 13 - DELIVERY?MOTHER^S MEDICATION
  4. LAMICTAL [Suspect]
     Active Substance: LAMOTRIGINE
     Indication: BIPOLAR DISORDER
     Dosage: ~0-4 WEEKS; 1:6 - DELIVERY?MOTHER^S MEDICATION
  5. LEVOTHYROXINE. [Suspect]
     Active Substance: LEVOTHYROXINE
     Indication: HYPOTHYROIDISM
     Dosage: ~0-DELIVERY?MOTHER^S MEDICATION

REACTIONS (6)
  - Maternal drugs affecting foetus [None]
  - Cephalhaematoma [None]
  - Ankyloglossia congenital [None]
  - Plagiocephaly [None]
  - Umbilical cord around neck [None]
  - Umbilical cord abnormality [None]

NARRATIVE: CASE EVENT DATE: 20170829
